FAERS Safety Report 10672043 (Version 2)
Quarter: 2014Q4

REPORT INFORMATION
  Report Type: Spontaneous
  Country: US (occurrence: US)
  Receive Date: 20141223
  Receipt Date: 20141223
  Transmission Date: 20150529
  Serious: Yes (Hospitalization, Other)
  Sender: FDA-Public Use
  Company Number: US-009507513-1201USA03739

PATIENT
  Sex: Female
  Weight: 60.78 kg

DRUGS (3)
  1. FOSAMAX [Suspect]
     Active Substance: ALENDRONATE SODIUM
     Indication: OSTEOPOROSIS
     Dosage: 70  MG, QW
     Route: 048
     Dates: start: 200207, end: 200807
  2. FOSAMAX [Suspect]
     Active Substance: ALENDRONATE SODIUM
     Dosage: UNK
     Route: 048
     Dates: start: 1997, end: 2010
  3. FOSAMAX [Suspect]
     Active Substance: ALENDRONATE SODIUM
     Dosage: UNK MG, UNK
     Route: 048
     Dates: start: 20080714

REACTIONS (40)
  - Femur fracture [Unknown]
  - Device failure [Unknown]
  - Fall [Unknown]
  - Pneumonia [Unknown]
  - Vitamin D deficiency [Unknown]
  - Urinary tract infection [Unknown]
  - Abscess [Unknown]
  - Vitiligo [Not Recovered/Not Resolved]
  - Macular degeneration [Not Recovered/Not Resolved]
  - Thrombophlebitis superficial [Unknown]
  - Impaired healing [Unknown]
  - Diverticulitis [Unknown]
  - Hypercholesterolaemia [Unknown]
  - Anxiety [Not Recovered/Not Resolved]
  - Candida infection [Unknown]
  - Bundle branch block left [Unknown]
  - Atrophic vulvovaginitis [Unknown]
  - Migraine [Unknown]
  - Low turnover osteopathy [Unknown]
  - Angiopathy [Unknown]
  - Urinary tract infection [Not Recovered/Not Resolved]
  - Ingrowing nail [Not Recovered/Not Resolved]
  - Lung disorder [Unknown]
  - Bronchitis [Unknown]
  - Foot fracture [Recovering/Resolving]
  - Urinary tract infection [Unknown]
  - Seasonal allergy [Unknown]
  - Abnormal weight gain [Unknown]
  - Abdominal hernia [Unknown]
  - Diverticulitis [Unknown]
  - Gingival disorder [Unknown]
  - Gingival bleeding [Unknown]
  - Temporomandibular joint syndrome [Unknown]
  - Osteoarthritis [Unknown]
  - Anaemia [Unknown]
  - Foot fracture [Unknown]
  - Gastrooesophageal reflux disease [Unknown]
  - Asthma [Unknown]
  - Hyperlipidaemia [Unknown]
  - Renal cyst [Unknown]

NARRATIVE: CASE EVENT DATE: 20030206
